FAERS Safety Report 17926968 (Version 2)
Quarter: 2021Q4

REPORT INFORMATION
  Report Type: Spontaneous
  Country: US (occurrence: US)
  Receive Date: 20200623
  Receipt Date: 20211214
  Transmission Date: 20220303
  Serious: No
  Sender: FDA-Public Use
  Company Number: US-GLOBAL BLOOD THERAPEUTICS INC-US-GBT-20-00312

PATIENT
  Age: 45 Year
  Sex: Male

DRUGS (7)
  1. OXBRYTA [Suspect]
     Active Substance: VOXELOTOR
     Indication: Thalassaemia sickle cell
     Route: 048
     Dates: start: 20200203
  2. MORPHINE [Concomitant]
     Active Substance: MORPHINE
     Indication: Thalassaemia sickle cell
     Route: 048
     Dates: start: 20190605, end: 20200220
  3. MORPHINE [Concomitant]
     Active Substance: MORPHINE
     Route: 048
     Dates: start: 20200220
  4. HYDROMORPHONE [Concomitant]
     Active Substance: HYDROMORPHONE
     Indication: Thalassaemia sickle cell
     Route: 048
     Dates: start: 20150518
  5. FOLIC ACID [Concomitant]
     Active Substance: FOLIC ACID
     Indication: Thalassaemia sickle cell
     Route: 048
     Dates: start: 20150330
  6. HYDROXYUREA [Concomitant]
     Active Substance: HYDROXYUREA
     Indication: Thalassaemia sickle cell
     Route: 048
     Dates: start: 20170424
  7. TRANSFUSION [Concomitant]
     Indication: Sickle cell disease
     Dosage: 1 DOSE
     Dates: start: 202001, end: 202001

REACTIONS (3)
  - Nausea [Unknown]
  - Headache [Recovered/Resolved]
  - Diarrhoea [Recovered/Resolved]

NARRATIVE: CASE EVENT DATE: 20200201
